FAERS Safety Report 9787266 (Version 1)
Quarter: 2013Q4

REPORT INFORMATION
  Report Type: Spontaneous
  Country: US (occurrence: US)
  Receive Date: 20131230
  Receipt Date: 20131230
  Transmission Date: 20140711
  Serious: No
  Sender: FDA-Public Use
  Company Number: US-009507513-1312USA011853

PATIENT
  Age: 36 Year
  Sex: Female
  Weight: 48.98 kg

DRUGS (2)
  1. NEXPLANON [Suspect]
     Indication: MOOD SWINGS
     Dosage: EVERY 3 YEARS, 1 ROD
     Route: 059
     Dates: start: 20131011
  2. NEXPLANON [Suspect]
     Indication: MENSTRUATION NORMAL

REACTIONS (1)
  - Menorrhagia [Unknown]
